FAERS Safety Report 8149680-8 (Version None)
Quarter: 2012Q1

REPORT INFORMATION
  Report Type: 
  Country: None (occurrence: None)
  Receive Date: 20120218
  Receipt Date: 20111118
  Transmission Date: 20120608
  Serious: No
  Sender: FDA-Public Use
  Company Number: US-ALLERGAN-1115214US

PATIENT
  Age: 41 Year
  Sex: Female

DRUGS (2)
  1. BOTULINUM TOXIN TYPE A [Suspect]
     Indication: SKIN WRINKLING
     Dosage: 40 UNITS, SINGLE
     Dates: start: 20111006, end: 20111006
  2. BOTULINUM TOXIN TYPE A [Suspect]

REACTIONS (1)
  - THERAPEUTIC RESPONSE DECREASED [None]
